FAERS Safety Report 15963697 (Version 3)
Quarter: 2019Q1

REPORT INFORMATION
  Report Type: Spontaneous
  Country: FR (occurrence: FR)
  Receive Date: 20190214
  Receipt Date: 20190215
  Transmission Date: 20190417
  Serious: Yes (Death, Life-Threatening)
  Sender: FDA-Public Use
  Company Number: PHHY2019FR033335

PATIENT
  Age: 63 Year
  Sex: Female

DRUGS (18)
  1. VANCOMYCIN [Suspect]
     Active Substance: VANCOMYCIN
     Indication: PYREXIA
     Dosage: UNK
     Route: 065
  2. PIPERACILLIN AND TAZOBACTAM [Suspect]
     Active Substance: PIPERACILLIN SODIUM\TAZOBACTAM SODIUM
     Indication: PYREXIA
     Dosage: UNK
     Route: 065
  3. MITOXANTRONE [Concomitant]
     Active Substance: MITOXANTRONE HYDROCHLORIDE
     Indication: ACUTE MYELOMONOCYTIC LEUKAEMIA
     Dosage: UNK (INTENSIVE CHEMOTHERAPY)
  4. TOBRAMYCIN. [Suspect]
     Active Substance: TOBRAMYCIN
     Indication: HAEMATOMA
  5. VANCOMYCIN [Suspect]
     Active Substance: VANCOMYCIN
     Indication: HAEMATOMA
  6. VANCOMYCIN [Suspect]
     Active Substance: VANCOMYCIN
     Indication: PNEUMONIA
  7. OFLOXACIN. [Suspect]
     Active Substance: OFLOXACIN
     Indication: URINARY TRACT INFECTION
     Dosage: UNK
     Route: 065
  8. ETOPOSIDE. [Concomitant]
     Active Substance: ETOPOSIDE
     Indication: ACUTE MYELOMONOCYTIC LEUKAEMIA
     Dosage: UNK (CONSOLIDATION CHEMOTHERAPY)
     Route: 065
  9. PIPERACILLIN AND TAZOBACTAM [Suspect]
     Active Substance: PIPERACILLIN SODIUM\TAZOBACTAM SODIUM
     Indication: PANCYTOPENIA
  10. TOBRAMYCIN. [Suspect]
     Active Substance: TOBRAMYCIN
     Indication: EVIDENCE BASED TREATMENT
  11. OFLOXACIN. [Suspect]
     Active Substance: OFLOXACIN
     Indication: ESCHERICHIA BACTERAEMIA
  12. TOBRAMYCIN. [Suspect]
     Active Substance: TOBRAMYCIN
     Indication: PYREXIA
     Dosage: UNK
     Route: 065
  13. TOBRAMYCIN. [Suspect]
     Active Substance: TOBRAMYCIN
     Indication: PANCYTOPENIA
  14. ARA-C [Concomitant]
     Active Substance: CYTARABINE
     Indication: ACUTE MYELOMONOCYTIC LEUKAEMIA
     Dosage: UNK (INTENSIVE CHEMOTHERAPY)
     Route: 065
  15. IDARUBICIN [Concomitant]
     Active Substance: IDARUBICIN
     Indication: ACUTE MYELOMONOCYTIC LEUKAEMIA
     Dosage: UNK
     Route: 065
  16. PIPERACILLIN AND TAZOBACTAM [Suspect]
     Active Substance: PIPERACILLIN SODIUM\TAZOBACTAM SODIUM
     Indication: HAEMATOMA
  17. PIPERACILLIN AND TAZOBACTAM [Suspect]
     Active Substance: PIPERACILLIN SODIUM\TAZOBACTAM SODIUM
     Indication: EVIDENCE BASED TREATMENT
  18. ARA-C [Concomitant]
     Active Substance: CYTARABINE
     Dosage: UNK (CONSOLIDATION CHEMOTHERAPY)
     Route: 065

REACTIONS (2)
  - Drug ineffective [Fatal]
  - Stenotrophomonas infection [Fatal]
